FAERS Safety Report 14731000 (Version 5)
Quarter: 2018Q2

REPORT INFORMATION
  Report Type: Report from Study
  Country: AT (occurrence: AT)
  Receive Date: 20180406
  Receipt Date: 20180614
  Transmission Date: 20180711
  Serious: Yes (Death, Life-Threatening, Hospitalization, Other)
  Sender: FDA-Public Use
  Company Number: AT-BRISTOL-MYERS SQUIBB COMPANY-BMS-2016-114480

PATIENT
  Age: 70 Year
  Sex: Female
  Weight: 43.1 kg

DRUGS (4)
  1. JAKAVI [Suspect]
     Active Substance: RUXOLITINIB
     Indication: MYELOFIBROSIS
     Route: 065
  2. HYDROXYUREA. [Suspect]
     Active Substance: HYDROXYUREA
     Indication: PRODUCT USED FOR UNKNOWN INDICATION
     Dosage: UNK
     Route: 065
     Dates: start: 20040215, end: 20150708
  3. JAKAVI [Suspect]
     Active Substance: RUXOLITINIB
     Indication: MYELOFIBROSIS
     Dosage: 25 MG, BID (25-0-25)
     Route: 048
     Dates: start: 20150708
  4. ASPIRIN                            /00002701/ [Suspect]
     Active Substance: ASPIRIN
     Indication: PRODUCT USED FOR UNKNOWN INDICATION
     Dosage: 100 MG, TID
     Route: 065

REACTIONS (37)
  - Hyponatraemia [Fatal]
  - Gamma-glutamyltransferase increased [Unknown]
  - Spinal cord haemorrhage [Recovered/Resolved]
  - Blood urea increased [Unknown]
  - Haematoma [Recovered/Resolved]
  - Urinary tract infection [Recovered/Resolved]
  - Subdural hygroma [Recovered/Resolved]
  - Back pain [Recovered/Resolved]
  - Hemiparesis [Unknown]
  - Influenza [Recovered/Resolved]
  - Blood calcium decreased [Unknown]
  - Blood alkaline phosphatase increased [Unknown]
  - Rash [Recovered/Resolved]
  - Pneumonia pneumococcal [Fatal]
  - Hypoaesthesia [Recovered/Resolved]
  - Paresis [Unknown]
  - Subdural haematoma [Recovered/Resolved]
  - H1N1 influenza [Unknown]
  - Aspartate aminotransferase increased [Unknown]
  - Blood creatinine increased [Unknown]
  - Platelet count decreased [Unknown]
  - Blood glucose increased [Unknown]
  - Paraplegia [Recovered/Resolved]
  - Pyrexia [Recovered/Resolved]
  - Blood chloride decreased [Unknown]
  - Herpes zoster [Recovered/Resolved]
  - Asthma [Not Recovered/Not Resolved]
  - Respiratory failure [Fatal]
  - Haemoglobin decreased [Unknown]
  - Blood sodium decreased [Unknown]
  - Muscle haemorrhage [Recovered/Resolved]
  - Influenza B virus test positive [Fatal]
  - White blood cell count increased [Unknown]
  - Arachnoid cyst [Recovered/Resolved]
  - Muscular weakness [Recovered/Resolved]
  - Spontaneous haematoma [Unknown]
  - Blood lactate dehydrogenase increased [Unknown]

NARRATIVE: CASE EVENT DATE: 201512
